FAERS Safety Report 5206087-0 (Version None)
Quarter: 2007Q1

REPORT INFORMATION
  Report Type: 
  Country: None (occurrence: None)
  Receive Date: 20070111
  Receipt Date: 20070104
  Transmission Date: 20070707
  Serious: Yes (Disabling)
  Sender: FDA-Public Use
  Company Number: 2007PK00026

PATIENT
  Age: 81 Year
  Sex: Male

DRUGS (5)
  1. SEROQUEL [Suspect]
     Indication: BIPOLAR DISORDER
     Dosage: 50 MG IN THE MORNING, 100 MG IN THE EVENING
     Route: 048
  2. TRIATEC [Concomitant]
     Route: 048
  3. SELIPRAN [Concomitant]
     Route: 048
  4. MARCUMAR [Concomitant]
     Route: 048
  5. INSULIN [Concomitant]
     Route: 058

REACTIONS (2)
  - CARDIAC FAILURE [None]
  - CONDITION AGGRAVATED [None]
